FAERS Safety Report 7575969-7 (Version None)
Quarter: 2011Q2

REPORT INFORMATION
  Report Type: 
  Country: None (occurrence: None)
  Receive Date: 20110628
  Receipt Date: 20110615
  Transmission Date: 20111010
  Serious: Yes (Hospitalization, Other)
  Sender: FDA-Public Use
  Company Number: US-BAYER-201023785NA

PATIENT
  Age: 20 Year
  Sex: Female
  Weight: 81.633 kg

DRUGS (8)
  1. DROSPIRENONE AND ETHINYL ESTRADIOL [Suspect]
     Indication: POLYCYSTIC OVARIES
     Dosage: UNK
     Dates: start: 20080401, end: 20091001
  2. TRAMADOL HCL [Concomitant]
     Dosage: 50 MG, UNK
     Dates: start: 20091121
  3. YASMIN [Suspect]
     Indication: POLYCYSTIC OVARIES
     Dosage: UNK
     Dates: start: 20080401, end: 20091001
  4. ANTIBIOTICS [Concomitant]
  5. HYDROCODONE BITARTRATE AND ACETAMINOPHEN [Concomitant]
     Indication: VIRAL INFECTION
     Dosage: 1 MG, UNK
     Dates: start: 20091103
  6. MOTRIN [Concomitant]
     Indication: MYALGIA
     Dosage: 600 MG, UNK
     Dates: start: 20091104
  7. YAZ [Suspect]
     Indication: PRODUCT USED FOR UNKNOWN INDICATION
  8. ASCORBIC ACID [Concomitant]

REACTIONS (6)
  - DEEP VEIN THROMBOSIS [None]
  - DEPRESSION [None]
  - PULMONARY EMBOLISM [None]
  - SUICIDAL IDEATION [None]
  - ANXIETY [None]
  - PHLEBITIS [None]
